FAERS Safety Report 7290903-5 (Version None)
Quarter: 2011Q1

REPORT INFORMATION
  Report Type: 
  Country: None (occurrence: None)
  Receive Date: 20110201
  Receipt Date: 20110119
  Transmission Date: 20110831
  Serious: Yes (Other)
  Sender: FDA-Public Use
  Company Number: 2011PV000007

PATIENT
  Sex: Male

DRUGS (2)
  1. DEPOCYT [Suspect]
     Indication: METASTASES TO MENINGES
     Dosage: INTH
  2. TOPOTECAN [Suspect]
     Indication: METASTASES TO MENINGES

REACTIONS (1)
  - LEUKOENCEPHALOPATHY [None]
